FAERS Safety Report 7096021-3 (Version None)
Quarter: 2010Q4

REPORT INFORMATION
  Report Type: 
  Country: None (occurrence: None)
  Receive Date: 20101111
  Receipt Date: 20080811
  Transmission Date: 20110411
  Serious: No
  Sender: FDA-Public Use
  Company Number: US-KINGPHARMUSA00001-K200800949

PATIENT
  Sex: Male

DRUGS (1)
  1. ALTACE [Suspect]
     Dates: end: 20080101

REACTIONS (3)
  - COUGH [None]
  - DRY THROAT [None]
  - SLEEP DISORDER [None]
